FAERS Safety Report 11320362 (Version 2)
Quarter: 2015Q3

REPORT INFORMATION
  Report Type: Spontaneous
  Country: US (occurrence: US)
  Receive Date: 20150729
  Receipt Date: 20150819
  Transmission Date: 20151125
  Serious: Yes (Other)
  Sender: FDA-Public Use
  Company Number: US-JNJFOC-20150716786

PATIENT
  Sex: Female
  Weight: 89.36 kg

DRUGS (12)
  1. SYNTHROID [Concomitant]
     Active Substance: LEVOTHYROXINE SODIUM
     Route: 065
  2. INVOKANA [Suspect]
     Active Substance: CANAGLIFLOZIN
     Indication: DIABETES MELLITUS
     Route: 048
     Dates: start: 201304
  3. FLONASE [Concomitant]
     Active Substance: FLUTICASONE PROPIONATE
     Route: 065
  4. METHYLSULFONYLMETHANE [Concomitant]
     Active Substance: DIMETHYL SULFONE
     Indication: ARTHRITIS
     Route: 065
  5. BIOIDENTICAL HORMONES [Concomitant]
     Indication: PRODUCT USED FOR UNKNOWN INDICATION
     Route: 065
  6. LOSARTAN. [Concomitant]
     Active Substance: LOSARTAN
     Route: 065
  7. GLIMEPIRIDE. [Concomitant]
     Active Substance: GLIMEPIRIDE
     Route: 065
  8. DIOVAN HCT [Concomitant]
     Active Substance: HYDROCHLOROTHIAZIDE\VALSARTAN
     Route: 065
  9. VENLAFAXINE XR [Concomitant]
     Active Substance: VENLAFAXINE HYDROCHLORIDE
     Indication: PRODUCT USED FOR UNKNOWN INDICATION
     Route: 065
  10. IBUPROFEN. [Concomitant]
     Active Substance: IBUPROFEN
     Route: 065
  11. TRICOR [Concomitant]
     Active Substance: FENOFIBRATE
     Route: 065
  12. VITAMINS NOS [Concomitant]
     Active Substance: VITAMINS
     Route: 065

REACTIONS (9)
  - Benign neoplasm of thyroid gland [Not Recovered/Not Resolved]
  - Abnormal loss of weight [Not Recovered/Not Resolved]
  - Paraesthesia oral [Not Recovered/Not Resolved]
  - Food allergy [Not Recovered/Not Resolved]
  - Cough [Not Recovered/Not Resolved]
  - Intestinal haemorrhage [Recovered/Resolved]
  - Viral infection [Not Recovered/Not Resolved]
  - Blood glucose increased [Not Recovered/Not Resolved]
  - Hypersensitivity [Not Recovered/Not Resolved]

NARRATIVE: CASE EVENT DATE: 2013
